FAERS Safety Report 6130244-2 (Version None)
Quarter: 2009Q1

REPORT INFORMATION
  Report Type: 
  Country: None (occurrence: None)
  Receive Date: 20090324
  Receipt Date: 20090317
  Transmission Date: 20090719
  Serious: Yes (Other)
  Sender: FDA-Public Use
  Company Number: US-PFIZER INC-2006081401

PATIENT
  Sex: Female
  Weight: 72.56 kg

DRUGS (7)
  1. PROVERA [Suspect]
     Indication: HORMONE REPLACEMENT THERAPY
     Route: 048
     Dates: start: 19800101, end: 19910301
  2. PROVERA [Suspect]
     Indication: MENOPAUSAL SYMPTOMS
  3. MEDROXYPROGESTERONE AND MEDROXYPROGESTERONE ACETATE [Suspect]
     Indication: HORMONE REPLACEMENT THERAPY
     Route: 048
     Dates: start: 19800101, end: 19910301
  4. PREMARIN [Suspect]
     Indication: HORMONE REPLACEMENT THERAPY
     Route: 065
     Dates: start: 19800101, end: 19910301
  5. PREMARIN [Suspect]
     Indication: MENOPAUSAL SYMPTOMS
  6. MAXIDEX [Concomitant]
     Indication: HYPERTENSION
     Dosage: UNK
     Dates: start: 19800101
  7. LOPRESSOR [Concomitant]
     Indication: HYPERTENSION
     Dosage: UNK
     Dates: start: 19800101

REACTIONS (1)
  - OVARIAN CANCER [None]
